FAERS Safety Report 19667029 (Version 1)
Quarter: 2021Q3

REPORT INFORMATION
  Report Type: Spontaneous
  Country: IL (occurrence: IL)
  Receive Date: 20210806
  Receipt Date: 20210806
  Transmission Date: 20211014
  Serious: Yes (Hospitalization)
  Sender: FDA-Public Use
  Company Number: IL-NOVOPROD-834494

PATIENT
  Sex: Female

DRUGS (1)
  1. SAXENDA [Suspect]
     Active Substance: LIRAGLUTIDE
     Indication: PRODUCT USED FOR UNKNOWN INDICATION
     Dosage: 0.6 MG, QD
     Route: 058
     Dates: start: 20210722, end: 20210724

REACTIONS (6)
  - Dizziness [Not Recovered/Not Resolved]
  - Malaise [Not Recovered/Not Resolved]
  - Asthenia [Not Recovered/Not Resolved]
  - Hypoglycaemia [Unknown]
  - Syncope [Unknown]
  - Fatigue [Unknown]

NARRATIVE: CASE EVENT DATE: 20210722
